FAERS Safety Report 6584144-4 (Version None)
Quarter: 2010Q1

REPORT INFORMATION
  Report Type: 
  Country: None (occurrence: None)
  Receive Date: 20100216
  Receipt Date: 20100208
  Transmission Date: 20100710
  Serious: Yes (Hospitalization)
  Sender: FDA-Public Use
  Company Number: US-GILEAD-2010-0026976

PATIENT
  Sex: Female

DRUGS (13)
  1. LETAIRIS [Suspect]
     Indication: PULMONARY ARTERIAL HYPERTENSION
     Route: 048
     Dates: start: 20090623
  2. NADOLOL [Concomitant]
  3. LISINOPRIL [Concomitant]
  4. LORAZEPAM [Concomitant]
  5. GEMFIBROZIL [Concomitant]
  6. GLIPIZIDE [Concomitant]
  7. ALBUTEROL [Concomitant]
  8. LIPITOR [Concomitant]
  9. SYMBICORT [Concomitant]
  10. LEXAPRO [Concomitant]
  11. ATROVENT [Concomitant]
  12. PLAVIX [Concomitant]
  13. NITROGLYCERIN [Concomitant]

REACTIONS (1)
  - SYNCOPE [None]
